FAERS Safety Report 6893688-7 (Version None)
Quarter: 2010Q3

REPORT INFORMATION
  Report Type: 
  Country: None (occurrence: None)
  Receive Date: 20100731
  Receipt Date: 20091207
  Transmission Date: 20110219
  Serious: No
  Sender: FDA-Public Use
  Company Number: US-PFIZER INC-2009252645

PATIENT
  Age: 66 Year
  Sex: Female

DRUGS (1)
  1. LIPITOR [Suspect]
     Indication: BLOOD CHOLESTEROL INCREASED
     Dosage: 10 MG, 1X/DAY
     Route: 048
     Dates: start: 20090101, end: 20090301

REACTIONS (5)
  - BLOOD CHOLESTEROL INCREASED [None]
  - DEPRESSION [None]
  - MYALGIA [None]
  - OSTEOARTHRITIS [None]
  - PAIN IN EXTREMITY [None]
